FAERS Safety Report 19588449 (Version 1)
Quarter: 2021Q3

REPORT INFORMATION
  Report Type: Spontaneous
  Country: FR (occurrence: FR)
  Receive Date: 20210721
  Receipt Date: 20210721
  Transmission Date: 20211014
  Serious: Yes (Hospitalization)
  Sender: FDA-Public Use
  Company Number: FR-ACCORD-232472

PATIENT
  Age: 38 Year
  Sex: Male
  Weight: 58 kg

DRUGS (5)
  1. FLUOXETINE [Suspect]
     Active Substance: FLUOXETINE HYDROCHLORIDE
     Route: 048
     Dates: start: 20210506, end: 20210506
  2. LORATADINE. [Suspect]
     Active Substance: LORATADINE
     Route: 048
     Dates: start: 20210506, end: 20210506
  3. ARIPIPRAZOLE. [Suspect]
     Active Substance: ARIPIPRAZOLE
     Route: 048
     Dates: start: 20210506, end: 20210506
  4. PAROXETINE. [Suspect]
     Active Substance: PAROXETINE
     Route: 048
     Dates: start: 20210506, end: 20210506
  5. TERCIAN [Suspect]
     Active Substance: CYAMEMAZINE
     Route: 048
     Dates: start: 20210506, end: 20210506

REACTIONS (2)
  - Sedation [Recovered/Resolved]
  - Poisoning deliberate [Unknown]

NARRATIVE: CASE EVENT DATE: 20210506
